FAERS Safety Report 25413531 (Version 2)
Quarter: 2025Q2

REPORT INFORMATION
  Report Type: Spontaneous
  Country: JP (occurrence: JP)
  Receive Date: 20250609
  Receipt Date: 20250616
  Transmission Date: 20250717
  Serious: Yes (Other)
  Sender: OTSUKA
  Company Number: JP-MMM-Otsuka-2ZTL6INM

PATIENT
  Age: 10 Decade
  Sex: Female

DRUGS (6)
  1. REXULTI [Suspect]
     Active Substance: BREXPIPRAZOLE
     Indication: Dementia Alzheimer^s type
     Dosage: 0.5 MG/DAY (ADMINISTRATION TIMING UNKNOWN)
     Route: 048
     Dates: start: 20250603
  2. REXULTI [Suspect]
     Active Substance: BREXPIPRAZOLE
     Indication: Irritability
  3. REXULTI [Suspect]
     Active Substance: BREXPIPRAZOLE
     Indication: Aggression
  4. DAYVIGO [Suspect]
     Active Substance: LEMBOREXANT
     Indication: Dementia Alzheimer^s type
     Dosage: 5 MG/DAY
     Route: 048
     Dates: start: 20250603
  5. DAYVIGO [Suspect]
     Active Substance: LEMBOREXANT
     Indication: Irritability
  6. DAYVIGO [Suspect]
     Active Substance: LEMBOREXANT
     Indication: Aggression

REACTIONS (1)
  - Hallucination [Not Recovered/Not Resolved]

NARRATIVE: CASE EVENT DATE: 20250603
